FAERS Safety Report 5021927-6 (Version None)
Quarter: 2006Q2

REPORT INFORMATION
  Report Type: 
  Country: None (occurrence: None)
  Receive Date: 20060609
  Receipt Date: 20060606
  Transmission Date: 20061013
  Serious: Yes (Hospitalization)
  Sender: FDA-Public Use
  Company Number: FR-AVENTIS-200612037FR

PATIENT
  Age: 74 Year
  Sex: Female
  Weight: 57 kg

DRUGS (1)
  1. BIRODOGYL [Suspect]
     Indication: GINGIVITIS
     Route: 048
     Dates: start: 20060410, end: 20060411

REACTIONS (3)
  - PYREXIA [None]
  - RASH [None]
  - VASCULAR PURPURA [None]
